FAERS Safety Report 20549695 (Version 1)
Quarter: 2022Q1

REPORT INFORMATION
  Report Type: Other
  Country: US (occurrence: None)
  Receive Date: 20220304
  Receipt Date: 20220304
  Transmission Date: 20220423
  Serious: Yes (Other)
  Sender: FDA-Public Use
  Company Number: US-ROCHE-3039948

PATIENT
  Sex: Female
  Weight: 99.880 kg

DRUGS (5)
  1. OCREVUS [Suspect]
     Active Substance: OCRELIZUMAB
     Indication: Multiple sclerosis
     Dosage: NO
     Route: 042
     Dates: start: 20180205, end: 20200806
  2. CARBAMAZEPINE [Concomitant]
     Active Substance: CARBAMAZEPINE
     Indication: Pain
     Dosage: 2 IN THE MORNING AND 2 AT NIGHT
     Route: 048
     Dates: start: 2022
  3. GABAPENTIN [Concomitant]
     Active Substance: GABAPENTIN
     Indication: Pain
     Dosage: 1200 MG IN THE MORNING; 1200 AT NIGHT
     Route: 048
     Dates: start: 2022
  4. GABAPENTIN [Concomitant]
     Active Substance: GABAPENTIN
     Dosage: 1 AT NOON
     Route: 048
     Dates: start: 2022
  5. BACLOFEN [Concomitant]
     Active Substance: BACLOFEN
     Indication: Pain
     Route: 048
     Dates: start: 2022

REACTIONS (4)
  - Breast cancer [Recovered/Resolved]
  - COVID-19 [Recovered/Resolved]
  - Trigeminal neuralgia [Not Recovered/Not Resolved]
  - Alopecia [Recovered/Resolved]

NARRATIVE: CASE EVENT DATE: 20200101
